FAERS Safety Report 8597279-1 (Version None)
Quarter: 2012Q3

REPORT INFORMATION
  Report Type: 
  Country: None (occurrence: None)
  Receive Date: 20120816
  Receipt Date: 20120810
  Transmission Date: 20120928
  Serious: No
  Sender: FDA-Public Use
  Company Number: US-BIOGENIDEC-2012BI030871

PATIENT
  Sex: Female

DRUGS (3)
  1. INTERFERON BETA-1A [Suspect]
     Indication: MULTIPLE SCLEROSIS
     Route: 030
     Dates: start: 20011121, end: 20030801
  2. INTERFERON BETA-1A [Suspect]
     Route: 030
     Dates: start: 20030801, end: 20120803
  3. INTERFERON BETA-1A [Suspect]
     Route: 030
     Dates: start: 20120810

REACTIONS (10)
  - HUNGER [None]
  - GLUCOSE TOLERANCE IMPAIRED [None]
  - SPEECH DISORDER [None]
  - HIATUS HERNIA [None]
  - ABDOMINAL HERNIA [None]
  - OESOPHAGEAL SPASM [None]
  - CYST [None]
  - ERUCTATION [None]
  - LACTOSE INTOLERANCE [None]
  - PAIN [None]
